FAERS Safety Report 5821097-8 (Version None)
Quarter: 2008Q3

REPORT INFORMATION
  Report Type: 
  Country: None (occurrence: None)
  Receive Date: 20080724
  Receipt Date: 20080717
  Transmission Date: 20090109
  Serious: Yes (Other)
  Sender: FDA-Public Use
  Company Number: US-WATSON-2008-04319

PATIENT
  Age: 10 Month

DRUGS (1)
  1. MORPHINE SULFATE INJ [Suspect]
     Indication: DRUG USE FOR UNKNOWN INDICATION
     Dosage: 5 MG
     Route: 042

REACTIONS (3)
  - APNOEA [None]
  - BRADYCARDIA [None]
  - INCORRECT DOSE ADMINISTERED [None]
